FAERS Safety Report 18325888 (Version 1)
Quarter: 2020Q3

REPORT INFORMATION
  Report Type: Spontaneous
  Country: US (occurrence: US)
  Receive Date: 20200929
  Receipt Date: 20200929
  Transmission Date: 20201103
  Serious: No
  Sender: FDA-Public Use
  Company Number: US-PFIZER INC-2020372935

PATIENT
  Age: 63 Year
  Sex: Female
  Weight: 58.51 kg

DRUGS (4)
  1. ESTRACE [Suspect]
     Active Substance: ESTRADIOL
     Indication: HOT FLUSH
     Dosage: 1 MG
  2. METHYLPREDNISOLONE. [Suspect]
     Active Substance: METHYLPREDNISOLONE
     Indication: HOT FLUSH
     Dosage: UNK
  3. ESTROGENS CONJUGATED/MEDROXYPROGESTERONE ACETATE [Suspect]
     Active Substance: ESTROGENS, CONJUGATED\MEDROXYPROGESTERONE ACETATE
     Indication: HOT FLUSH
     Dosage: UNK
  4. PEPCID [Concomitant]
     Active Substance: FAMOTIDINE
     Indication: GASTROOESOPHAGEAL REFLUX DISEASE
     Dosage: 40 MG, DAILY, (TAKE ONCE DAILY BY MOUTH)
     Route: 048

REACTIONS (1)
  - Drug ineffective [Unknown]
